FAERS Safety Report 4511268-5 (Version None)
Quarter: 2004Q4

REPORT INFORMATION
  Report Type: 
  Country: None (occurrence: None)
  Receive Date: 20041122
  Receipt Date: 20041122
  Transmission Date: 20050328
  Serious: Yes (Other)
  Sender: FDA-Public Use
  Company Number: None

PATIENT
  Age: 33 Year
  Sex: Male
  Weight: 104.3273 kg

DRUGS (2)
  1. HUMIBID LA CAROLINA PHARM [Suspect]
     Indication: HAEMORRHAGE
     Dosage: 1 2 ORAL
     Route: 048
     Dates: start: 20041025, end: 20041125
  2. KEFLEX [Suspect]
     Dosage: 1 2 ORAL
     Route: 048
     Dates: start: 20041117, end: 20041127

REACTIONS (2)
  - NASAL OEDEMA [None]
  - SWELLING FACE [None]
